FAERS Safety Report 25545232 (Version 2)
Quarter: 2025Q4

REPORT INFORMATION
  Report Type: Spontaneous
  Country: EU (occurrence: EU)
  Receive Date: 20250711
  Receipt Date: 20251006
  Transmission Date: 20260118
  Serious: Yes (Other)
  Sender: ELI LILLY AND COMPANY
  Company Number: EU-ELI_LILLY_AND_COMPANY-PT202507005738

PATIENT
  Age: 38 Year
  Sex: Female

DRUGS (3)
  1. EMGALITY [Suspect]
     Active Substance: GALCANEZUMAB-GNLM
     Indication: Migraine
     Dosage: 240 MG, (FIRST DOSE) 2 PENS AS LOADING DOSE
     Route: 058
     Dates: start: 20250506, end: 20250506
  2. EMGALITY [Suspect]
     Active Substance: GALCANEZUMAB-GNLM
     Dosage: 120 MG (1 PEN), MONTHLY (1/M)
     Route: 058
     Dates: start: 20250606, end: 20250613
  3. ZONISAMIDE [Concomitant]
     Active Substance: ZONISAMIDE
     Indication: Product used for unknown indication
     Dosage: 100 MG, DAILY
     Route: 065

REACTIONS (1)
  - Disruption of the photoreceptor inner segment-outer segment [Recovered/Resolved]

NARRATIVE: CASE EVENT DATE: 20250609
